FAERS Safety Report 4567420-6 (Version None)
Quarter: 2005Q1

REPORT INFORMATION
  Report Type: 
  Country: None (occurrence: None)
  Receive Date: 20050127
  Receipt Date: 20050113
  Transmission Date: 20050727
  Serious: Yes (Hospitalization)
  Sender: FDA-Public Use
  Company Number: 2004AP06466

PATIENT
  Age: 43 Year
  Sex: Female
  Weight: 26.3086 kg

DRUGS (4)
  1. NOLVADEX [Suspect]
     Indication: ENDOMETRIAL SARCOMA
     Dosage: 10 MG BID PO
     Route: 048
     Dates: start: 20041004, end: 20041208
  2. BACTRIM [Concomitant]
  3. BENZYLHYDROCHLORTHIAZIDE [Concomitant]
  4. INDERAL [Concomitant]

REACTIONS (2)
  - TACHYCARDIA [None]
  - TOXIC EPIDERMAL NECROLYSIS [None]
